FAERS Safety Report 22972516 (Version 5)
Quarter: 2024Q1

REPORT INFORMATION
  Report Type: Spontaneous
  Country: US (occurrence: US)
  Receive Date: 20230922
  Receipt Date: 20240103
  Transmission Date: 20240409
  Serious: Yes (Other)
  Sender: FDA-Public Use
  Company Number: US-BAYER-2023A132999

PATIENT
  Age: 17 Year
  Sex: Male

DRUGS (1)
  1. KOVALTRY [Suspect]
     Active Substance: ANTIHEMOPHILIC FACTOR, HUMAN RECOMBINANT
     Dosage: 6500 IU
     Route: 042

REACTIONS (5)
  - Limb injury [None]
  - Muscle haemorrhage [None]
  - Pain [None]
  - Pain [None]
  - Epistaxis [None]

NARRATIVE: CASE EVENT DATE: 20230917
